FAERS Safety Report 6741655-6 (Version None)
Quarter: 2010Q2

REPORT INFORMATION
  Report Type: 
  Country: None (occurrence: None)
  Receive Date: 20100526
  Receipt Date: 20100514
  Transmission Date: 20101027
  Serious: Yes (Hospitalization, Other)
  Sender: FDA-Public Use
  Company Number: US-BAYER-200935946NA

PATIENT
  Age: 39 Year
  Sex: Female
  Weight: 70 kg

DRUGS (15)
  1. YASMIN [Suspect]
     Indication: PREMENSTRUAL SYNDROME
     Route: 048
     Dates: start: 20050101, end: 20070501
  2. YAZ [Suspect]
     Indication: PREMENSTRUAL SYNDROME
     Route: 048
     Dates: start: 20070701, end: 20071001
  3. ZOVIRAX [Concomitant]
     Indication: HERPES VIRUS INFECTION
     Dosage: MONTHLY
     Route: 065
     Dates: start: 19910101
  4. IBUPROFEN [Concomitant]
     Dates: start: 20090501, end: 20090501
  5. DIAZEPAM [Concomitant]
     Dates: start: 20081101, end: 20081101
  6. OMEPRAZOLE [Concomitant]
     Dosage: MONTHLY
     Route: 065
  7. WARFARIN SODIUM [Concomitant]
     Route: 065
     Dates: start: 20071101
  8. PATANOL [Concomitant]
     Route: 047
     Dates: start: 20070601, end: 20070601
  9. ADVIL LIQUI-GELS [Concomitant]
     Route: 065
  10. VICODIN [Concomitant]
     Route: 048
     Dates: start: 20071001
  11. LEVOTHYROXINE SODIUM [Concomitant]
     Dosage: TOTAL DAILY DOSE: 975 MG  UNIT DOSE: 325 MG
     Route: 048
  12. PROCRIT [Concomitant]
     Route: 058
  13. DILAUDID [Concomitant]
     Route: 042
     Dates: start: 20071001
  14. ZOFRAN [Concomitant]
     Route: 065
     Dates: start: 20071001
  15. COUMADIN [Concomitant]

REACTIONS (10)
  - ATELECTASIS [None]
  - CHEST PAIN [None]
  - COUGH [None]
  - DYSFUNCTIONAL UTERINE BLEEDING [None]
  - DYSPNOEA [None]
  - FUNGAL SKIN INFECTION [None]
  - IRON DEFICIENCY ANAEMIA [None]
  - PLEURISY [None]
  - PULMONARY EMBOLISM [None]
  - THYROID NEOPLASM [None]
